FAERS Safety Report 18942775 (Version 2)
Quarter: 2021Q2

REPORT INFORMATION
  Report Type: Spontaneous
  Country: ZA (occurrence: ZA)
  Receive Date: 20210225
  Receipt Date: 20210513
  Transmission Date: 20210717
  Serious: Yes (Other)
  Sender: FDA-Public Use
  Company Number: ZA-US-PROVELL PHARMACEUTICALS LLC-9220909

PATIENT
  Age: 2 Month
  Sex: Male

DRUGS (1)
  1. EUTHYROX [Suspect]
     Active Substance: LEVOTHYROXINE SODIUM
     Indication: HYPOTHYROIDISM

REACTIONS (6)
  - Tonsillar cyst [Unknown]
  - Maternal exposure during breast feeding [Recovered/Resolved]
  - Lymphadenopathy [Unknown]
  - Growing pains [Not Recovered/Not Resolved]
  - Muscle spasms [Not Recovered/Not Resolved]
  - Magnesium deficiency [Unknown]
